FAERS Safety Report 6322870-2 (Version None)
Quarter: 2009Q3

REPORT INFORMATION
  Report Type: 
  Country: None (occurrence: None)
  Receive Date: 20090824
  Receipt Date: 20090818
  Transmission Date: 20100115
  Serious: Yes (Disabling, Other)
  Sender: FDA-Public Use
  Company Number: PHHY2008JP03659

PATIENT
  Sex: Female

DRUGS (5)
  1. ZOLEDRONATE T29581+ [Suspect]
     Indication: BREAST CANCER
     Dosage: 4 MG EVER 3 WEEKS
     Route: 042
     Dates: start: 20061025, end: 20070328
  2. ZOLEDRONATE T29581+ [Suspect]
     Indication: METASTASES TO BONE
  3. AREDIA [Suspect]
     Dosage: 45 MG, EVERY TWO WEEKS
     Route: 042
     Dates: start: 20030801, end: 20060920
  4. NAVELBINE [Concomitant]
     Indication: BREAST CANCER
     Dosage: 30 MG/ DAY
     Route: 042
     Dates: start: 20061025, end: 20070328
  5. HERCEPTIN [Concomitant]
     Indication: BREAST CANCER
     Dosage: 84 MG / DAY
     Route: 042
     Dates: start: 20061025, end: 20070328

REACTIONS (10)
  - ABSCESS [None]
  - DENTAL CARIES [None]
  - ERYTHEMA [None]
  - GINGIVAL INFECTION [None]
  - HYPOCALCAEMIA [None]
  - OSTEONECROSIS [None]
  - PAIN IN JAW [None]
  - SWELLING [None]
  - TOOTH EXTRACTION [None]
  - TOOTHACHE [None]
